FAERS Safety Report 6096209-4 (Version None)
Quarter: 2009Q1

REPORT INFORMATION
  Report Type: 
  Country: None (occurrence: None)
  Receive Date: 20090227
  Receipt Date: 20081003
  Transmission Date: 20090719
  Serious: No
  Sender: FDA-Public Use
  Company Number: A0750466A

PATIENT
  Age: 38 Year
  Sex: Female

DRUGS (7)
  1. LAMICTAL [Suspect]
     Indication: BIPOLAR DISORDER
     Dosage: 25MG PER DAY
     Route: 048
     Dates: start: 20080918
  2. NEXIUM [Concomitant]
  3. SINGULAIR [Concomitant]
  4. ADVAIR HFA [Concomitant]
  5. SPIRIVA [Concomitant]
  6. ZYRTEC [Concomitant]
  7. ALBUTEROL [Concomitant]

REACTIONS (2)
  - HEADACHE [None]
  - MYALGIA [None]
